FAERS Safety Report 8797076 (Version 2)
Quarter: 2015Q3

REPORT INFORMATION
  Report Type: Report from Study
  Country: US (occurrence: US)
  Receive Date: 20120919
  Receipt Date: 20150703
  Transmission Date: 20151125
  Serious: Yes (Death, Hospitalization)
  Sender: FDA-Public Use
  Company Number: US-ROCHE-1123343

PATIENT
  Sex: Male

DRUGS (16)
  1. ALOXI [Concomitant]
     Active Substance: PALONOSETRON HYDROCHLORIDE
     Route: 065
  2. AMBIEN [Concomitant]
     Active Substance: ZOLPIDEM TARTRATE
  3. AVASTIN [Suspect]
     Active Substance: BEVACIZUMAB
     Indication: BONE CANCER
  4. RITALIN [Concomitant]
     Active Substance: METHYLPHENIDATE HYDROCHLORIDE
  5. COLACE [Concomitant]
     Active Substance: DOCUSATE SODIUM
  6. OXYCONTIN [Concomitant]
     Active Substance: OXYCODONE HYDROCHLORIDE
     Route: 065
  7. VANCOMYCIN [Concomitant]
     Active Substance: VANCOMYCIN
     Route: 065
  8. NEURONTIN [Concomitant]
     Active Substance: GABAPENTIN
     Route: 065
  9. ZOMETA [Concomitant]
     Active Substance: ZOLEDRONIC ACID
     Route: 042
  10. OXYCODONE [Concomitant]
     Active Substance: OXYCODONE
  11. AVASTIN [Suspect]
     Active Substance: BEVACIZUMAB
     Indication: MALIGNANT URINARY TRACT NEOPLASM
     Route: 042
     Dates: start: 20070530
  12. AMIODARONE [Concomitant]
     Active Substance: AMIODARONE
     Route: 065
  13. PRILOSEC [Concomitant]
     Active Substance: OMEPRAZOLE MAGNESIUM
     Route: 065
  14. LASIX [Concomitant]
     Active Substance: FUROSEMIDE
     Route: 065
  15. ROCEPHIN [Concomitant]
     Active Substance: CEFTRIAXONE SODIUM
     Route: 065
  16. ASPIRIN. [Concomitant]
     Active Substance: ASPIRIN
     Route: 065

REACTIONS (16)
  - Death [Fatal]
  - Abdominal pain upper [Unknown]
  - Abdominal discomfort [Unknown]
  - Induration [Unknown]
  - Off label use [Unknown]
  - Oedema peripheral [Unknown]
  - Asthenia [Unknown]
  - Musculoskeletal pain [Unknown]
  - Arrhythmia [Unknown]
  - Cough [Unknown]
  - Dyspnoea [Recovered/Resolved]
  - Cachexia [Unknown]
  - Pneumonia [Unknown]
  - Chest pain [Recovered/Resolved]
  - Hypophagia [Unknown]
  - Exercise tolerance decreased [Unknown]
